FAERS Safety Report 11704312 (Version 5)
Quarter: 2016Q1

REPORT INFORMATION
  Report Type: Spontaneous
  Country: US (occurrence: US)
  Receive Date: 20151106
  Receipt Date: 20160322
  Transmission Date: 20160525
  Serious: No
  Sender: FDA-Public Use
  Company Number: US-009507513-1511USA002610

PATIENT
  Age: 21 Year
  Sex: Female
  Weight: 115.19 kg

DRUGS (1)
  1. IMPLANON [Suspect]
     Active Substance: ETONOGESTREL
     Dosage: STRENGTH: 68 (UNIT NOT PROVIDED)
     Route: 059
     Dates: start: 20120621

REACTIONS (4)
  - Weight increased [Unknown]
  - Incorrect drug administration duration [Unknown]
  - Device difficult to use [Not Recovered/Not Resolved]
  - Complication associated with device [Not Recovered/Not Resolved]

NARRATIVE: CASE EVENT DATE: 20150226
